FAERS Safety Report 8415561-5 (Version None)
Quarter: 2012Q2

REPORT INFORMATION
  Report Type: 
  Country: None (occurrence: None)
  Receive Date: 20120606
  Receipt Date: 20120525
  Transmission Date: 20120825
  Serious: Yes (Death, Hospitalization)
  Sender: FDA-Public Use
  Company Number: US-SANOFI-AVENTIS-2012SA038301

PATIENT
  Age: 70 Year
  Sex: Male

DRUGS (8)
  1. DOCETAXEL [Suspect]
     Route: 041
     Dates: start: 20110207, end: 20110207
  2. INVESTIGATIONAL DRUG [Suspect]
     Indication: PROSTATE CANCER METASTATIC
     Route: 048
     Dates: start: 20110207
  3. INVESTIGATIONAL DRUG [Suspect]
     Route: 048
     Dates: start: 20120409, end: 20120422
  4. DOCETAXEL [Suspect]
     Route: 041
     Dates: start: 20120409, end: 20120409
  5. PREDNISONE [Suspect]
     Route: 048
     Dates: start: 20120409, end: 20120502
  6. BEVACIZUMAB [Suspect]
     Route: 042
     Dates: start: 20110207, end: 20110207
  7. BEVACIZUMAB [Suspect]
     Route: 042
     Dates: start: 20120409, end: 20120409
  8. PREDNISONE [Suspect]
     Route: 048
     Dates: start: 20110207

REACTIONS (2)
  - SCROTAL INFECTION [None]
  - DEATH [None]
